FAERS Safety Report 8018964-6 (Version None)
Quarter: 2012Q1

REPORT INFORMATION
  Report Type: 
  Country: None (occurrence: None)
  Receive Date: 20120103
  Receipt Date: 20111229
  Transmission Date: 20120608
  Serious: No
  Sender: FDA-Public Use
  Company Number: US-PFIZER INC-2011316813

PATIENT
  Sex: Female

DRUGS (1)
  1. SERTRALINE HYDROCHLORIDE [Suspect]
     Dosage: UNK
     Route: 048

REACTIONS (5)
  - FLATULENCE [None]
  - LIP PAIN [None]
  - ABDOMINAL DISTENSION [None]
  - DRY MOUTH [None]
  - CONSTIPATION [None]
